FAERS Safety Report 21262444 (Version 1)
Quarter: 2022Q3

REPORT INFORMATION
  Report Type: Spontaneous
  Country: US (occurrence: US)
  Receive Date: 20220828
  Receipt Date: 20220828
  Transmission Date: 20221027
  Serious: Yes (Other)
  Sender: FDA-Public Use
  Company Number: US-SA-SAC20220824001069

PATIENT
  Age: 65 Year
  Sex: Male

DRUGS (1)
  1. ZANTAC [Suspect]
     Active Substance: RANITIDINE HYDROCHLORIDE
     Indication: Dyspepsia
     Dosage: 300 MG, QD
     Dates: start: 201304, end: 201911

REACTIONS (3)
  - Colorectal cancer stage II [Not Recovered/Not Resolved]
  - Hepatic cancer stage II [Not Recovered/Not Resolved]
  - Lung carcinoma cell type unspecified stage II [Not Recovered/Not Resolved]

NARRATIVE: CASE EVENT DATE: 20180101
